FAERS Safety Report 11204956 (Version 1)
Quarter: 2015Q2

REPORT INFORMATION
  Report Type: Spontaneous
  Country: ES (occurrence: ES)
  Receive Date: 20150622
  Receipt Date: 20150622
  Transmission Date: 20150821
  Serious: Yes (Other)
  Sender: FDA-Public Use
  Company Number: ES-ALKEM-001060

PATIENT
  Age: 20 Year
  Sex: Female

DRUGS (1)
  1. MYCOPHENOLIC ACID. [Suspect]
     Active Substance: MYCOPHENOLIC ACID
     Indication: ANGIOEDEMA
     Dosage: RECEIVED SECOND DOSE WITHIN 24 H VIA AIRWAY

REACTIONS (1)
  - Angioedema [Recovered/Resolved]
